FAERS Safety Report 7265128-X (Version None)
Quarter: 2011Q1

REPORT INFORMATION
  Report Type: 
  Country: None (occurrence: None)
  Receive Date: 20110131
  Receipt Date: 20110121
  Transmission Date: 20110831
  Serious: Yes (Hospitalization)
  Sender: FDA-Public Use
  Company Number: BR-MEDIMMUNE-MEDI-0012317

PATIENT
  Sex: Male
  Weight: 7 kg

DRUGS (5)
  1. SYNAGIS [Suspect]
     Route: 030
     Dates: start: 20090901, end: 20100526
  2. FOLIC ACID [Concomitant]
     Indication: VITAMIN SUPPLEMENTATION
  3. VITAMIN AD [Concomitant]
     Indication: VITAMIN SUPPLEMENTATION
  4. FLUTICASONE PROPIONATE [Concomitant]
     Indication: WHEEZING
     Route: 048
  5. SYNAGIS [Suspect]
     Route: 030
     Dates: start: 20100916, end: 20100916

REACTIONS (3)
  - LACTOSE INTOLERANCE [None]
  - PNEUMONIA [None]
  - GASTROOESOPHAGEAL REFLUX DISEASE [None]
